FAERS Safety Report 8480934-1 (Version None)
Quarter: 2012Q3

REPORT INFORMATION
  Report Type: 
  Country: None (occurrence: None)
  Receive Date: 20120702
  Receipt Date: 20120621
  Transmission Date: 20120928
  Serious: Yes (Other)
  Sender: FDA-Public Use
  Company Number: CA-JNJFOC-20120611360

PATIENT
  Sex: Female
  Weight: 134 kg

DRUGS (3)
  1. PREDNISONE TAB [Concomitant]
     Route: 065
  2. REMICADE [Suspect]
     Indication: PYODERMA GANGRENOSUM
     Route: 042
     Dates: start: 20110112
  3. METHOTREXATE [Suspect]
     Indication: PYODERMA GANGRENOSUM
     Route: 065

REACTIONS (2)
  - PYODERMA GANGRENOSUM [None]
  - DRUG INEFFECTIVE [None]
